FAERS Safety Report 18991197 (Version 1)
Quarter: 2021Q1

REPORT INFORMATION
  Report Type: Spontaneous
  Country: JP (occurrence: JP)
  Receive Date: 20210310
  Receipt Date: 20210310
  Transmission Date: 20210420
  Serious: Yes (Hospitalization)
  Sender: FDA-Public Use
  Company Number: JP-MYLANLABS-2021M1013856

PATIENT
  Age: 46 Year
  Sex: Female

DRUGS (7)
  1. FAVIPIRAVIR [Suspect]
     Active Substance: FAVIPIRAVIR
     Indication: COVID-19 PNEUMONIA
     Route: 065
  2. PREDNISOLONE. [Suspect]
     Active Substance: PREDNISOLONE
     Indication: INTERSTITIAL LUNG DISEASE
     Dosage: 50 MILLIGRAM, QD, AS A PART OF TRIPLE THERAPY
     Route: 065
     Dates: start: 2020, end: 2020
  3. METHYLPREDNISOLONE. [Suspect]
     Active Substance: METHYLPREDNISOLONE
     Indication: INTERSTITIAL LUNG DISEASE
     Dosage: 500 MILLIGRAM, QD REMISSION INDUCTION THERAPY; PULSE DOSES
     Route: 065
     Dates: start: 2020, end: 2020
  4. CYCLOPHOSPHAMIDE. [Suspect]
     Active Substance: CYCLOPHOSPHAMIDE
     Indication: INTERSTITIAL LUNG DISEASE
     Dosage: 750 MILLIGRAM, CYCLE, RECEIVED 4 CYCLES AS A PART OF TRIPLE THERAPY; PULSE DOSES
     Route: 042
     Dates: start: 2020, end: 2020
  5. CICLESONIDE [Suspect]
     Active Substance: CICLESONIDE
     Indication: COVID-19 PNEUMONIA
  6. TACROLIMUS. [Suspect]
     Active Substance: TACROLIMUS
     Indication: INTERSTITIAL LUNG DISEASE
     Dosage: 4 MILLIGRAM, QD, AS A PART OF TRIPLE THERAPY
     Route: 065
     Dates: start: 2020, end: 2020
  7. NAFAMOSTAT [Suspect]
     Active Substance: NAFAMOSTAT
     Indication: COVID-19 PNEUMONIA
     Route: 065

REACTIONS (2)
  - COVID-19 pneumonia [Recovered/Resolved]
  - Viral load increased [Recovered/Resolved]

NARRATIVE: CASE EVENT DATE: 2020
